FAERS Safety Report 8509884 (Version 2)
Quarter: 2012Q4

REPORT INFORMATION
  Report Type: Spontaneous
  Country: GB (occurrence: None)
  Receive Date: 20120409
  Receipt Date: 20120816
  Transmission Date: 20130627
  Serious: Yes (Other)
  Sender: FDA-Public Use
  Company Number: 2012AP000882

PATIENT
  Age: 78 Year
  Sex: Male

DRUGS (2)
  1. LATANOPROST [Suspect]
     Dosage: ;OPH;
     Route: 047
     Dates: start: 201203, end: 201203
  2. XALATAN [Concomitant]

REACTIONS (3)
  - Instillation site pain [None]
  - Product substitution issue [None]
  - Instillation site pain [None]
